FAERS Safety Report 6138731-8 (Version None)
Quarter: 2009Q1

REPORT INFORMATION
  Report Type: 
  Country: None (occurrence: None)
  Receive Date: 20090331
  Receipt Date: 20090316
  Transmission Date: 20090719
  Serious: Yes (Other)
  Sender: FDA-Public Use
  Company Number: US-GENENTECH-279896

PATIENT
  Age: 58 Year
  Sex: Male

DRUGS (6)
  1. AVASTIN [Suspect]
     Indication: PROSTATE CANCER METASTATIC
     Dosage: 15 MG/KG, Q21D
     Route: 065
  2. DOCETAXEL [Suspect]
     Indication: PROSTATE CANCER METASTATIC
     Dosage: 75 MG/M2, Q21D
     Route: 065
  3. THALIDOMIDE [Suspect]
     Indication: PROSTATE CANCER METASTATIC
     Dosage: 200 MG, QD
     Route: 065
  4. PREDNISONE [Suspect]
     Indication: PROSTATE CANCER METASTATIC
     Dosage: 10 MG, QD
     Route: 065
  5. ZOLEDRONIC ACID [Suspect]
     Indication: METASTASES TO BONE
     Dosage: UNK
     Route: 058
  6. ENOXAPARIN SODIUM [Concomitant]
     Indication: DRUG USE FOR UNKNOWN INDICATION

REACTIONS (1)
  - OSTEONECROSIS [None]
